FAERS Safety Report 7891238-X (Version None)
Quarter: 2011Q4

REPORT INFORMATION
  Report Type: 
  Country: None (occurrence: None)
  Receive Date: 20111103
  Receipt Date: 20110801
  Transmission Date: 20120403
  Serious: No
  Sender: FDA-Public Use
  Company Number: US-AMGEN-USASP2011036908

PATIENT
  Sex: Male
  Weight: 76.19 kg

DRUGS (6)
  1. GLUCOPHAGE [Concomitant]
     Dosage: UNK
  2. ENBREL [Suspect]
     Indication: RHEUMATOID ARTHRITIS
     Dosage: 50 MG, QWK
     Route: 058
     Dates: start: 20090729, end: 20110719
  3. LISINOPRIL [Concomitant]
     Dosage: UNK
  4. METHOTREXATE [Concomitant]
     Dosage: UNK
  5. ADVAIR DISKUS 100/50 [Concomitant]
     Dosage: UNK
  6. CRESTOR [Concomitant]
     Dosage: UNK

REACTIONS (2)
  - COUGH [None]
  - EYE INFECTION [None]
